FAERS Safety Report 25859772 (Version 1)
Quarter: 2025Q3

REPORT INFORMATION
  Report Type: Spontaneous
  Country: US (occurrence: US)
  Receive Date: 20250929
  Receipt Date: 20250929
  Transmission Date: 20251020
  Serious: No
  Sender: ALEXION PHARMACEUTICALS
  Company Number: US-AstraZeneca-CH-00958221A

PATIENT
  Age: 45 Year
  Sex: Male

DRUGS (1)
  1. ASFOTASE ALFA [Suspect]
     Active Substance: ASFOTASE ALFA
     Indication: Hypophosphatasia
     Dates: start: 20191119

REACTIONS (4)
  - Fatigue [Unknown]
  - Somnolence [Unknown]
  - Pain [Unknown]
  - Autoantibody positive [Unknown]
